FAERS Safety Report 18631195 (Version 1)
Quarter: 2020Q4

REPORT INFORMATION
  Report Type: Spontaneous
  Country: US (occurrence: US)
  Receive Date: 20201218
  Receipt Date: 20201218
  Transmission Date: 20210114
  Serious: Yes (Life-Threatening, Hospitalization, Other)
  Sender: FDA-Public Use
  Company Number: US-HIKMA PHARMACEUTICALS USA INC.-US-H14001-20-05631

PATIENT
  Age: 38 Year
  Sex: Male

DRUGS (3)
  1. METHOTREXATE. [Suspect]
     Active Substance: METHOTREXATE
     Indication: PRODUCT USED FOR UNKNOWN INDICATION
     Dosage: UNKNOWN
     Route: 065
  2. ULTRAM [Suspect]
     Active Substance: TRAMADOL HYDROCHLORIDE
     Indication: PRODUCT USED FOR UNKNOWN INDICATION
     Route: 065
     Dates: start: 1999
  3. NORTRIPTILINE [Suspect]
     Active Substance: NORTRIPTYLINE
     Indication: PRODUCT USED FOR UNKNOWN INDICATION
     Dosage: UNKNOWN
     Route: 065
     Dates: start: 1999

REACTIONS (15)
  - Withdrawal syndrome [Unknown]
  - Shock [Unknown]
  - Ageusia [Unknown]
  - Suicide threat [Unknown]
  - Seizure [Unknown]
  - Disturbance in attention [Unknown]
  - Drug dependence [Unknown]
  - Feeling abnormal [Unknown]
  - Thinking abnormal [Unknown]
  - Temperature intolerance [Unknown]
  - Suicidal ideation [Unknown]
  - Illness [Unknown]
  - Photosensitivity reaction [Unknown]
  - Hyperacusis [Unknown]
  - Anosmia [Unknown]

NARRATIVE: CASE EVENT DATE: 19991222
